FAERS Safety Report 7410595-1 (Version None)
Quarter: 2011Q2

REPORT INFORMATION
  Report Type: 
  Country: None (occurrence: None)
  Receive Date: 20110413
  Receipt Date: 20110404
  Transmission Date: 20111010
  Serious: No
  Sender: FDA-Public Use
  Company Number: US-BIOGENIDEC-2011BI012580

PATIENT
  Age: 56 Year
  Sex: Female

DRUGS (3)
  1. ZOLOFT [Concomitant]
     Indication: DEPRESSION
     Route: 048
     Dates: start: 20090101
  2. XANAX [Concomitant]
     Indication: ANXIETY
     Route: 048
     Dates: start: 20090101
  3. AVONEX [Suspect]
     Indication: MULTIPLE SCLEROSIS
     Route: 030
     Dates: start: 20110314

REACTIONS (3)
  - AGITATION [None]
  - IRRITABILITY [None]
  - ANXIETY [None]
